FAERS Safety Report 10933690 (Version 1)
Quarter: 2015Q1

REPORT INFORMATION
  Report Type: Spontaneous
  Country: IR (occurrence: None)
  Receive Date: 20150318
  Receipt Date: 20150318
  Transmission Date: 20150721
  Serious: Yes (Death)
  Sender: FDA-Public Use
  Company Number: NSR_01999_2015

PATIENT
  Age: 30 Year
  Sex: Male

DRUGS (11)
  1. PROPRANOLOL [Suspect]
     Active Substance: PROPRANOLOL\PROPRANOLOL HYDROCHLORIDE
     Indication: PRODUCT USED FOR UNKNOWN INDICATION
     Dosage: ([NOT THE PRESCRIBED AMOUNT])
  2. PHENOBARBITAL (PHENOBARBITAL) [Suspect]
     Active Substance: PHENOBARBITAL
     Indication: PRODUCT USED FOR UNKNOWN INDICATION
     Dosage: ([NOT THE PRESCRIBED AMOUNT])
  3. CLONAZEPAM (CLONAZEPAM) [Suspect]
     Active Substance: CLONAZEPAM
     Indication: PRODUCT USED FOR UNKNOWN INDICATION
     Dosage: ([NOT THE PRESCRIBED AMOUNT])
  4. PHENMETRAZINE [Suspect]
     Active Substance: PHENMETRAZINE
     Indication: PRODUCT USED FOR UNKNOWN INDICATION
     Dosage: ([NOT THE PRESCRIBED AMOUNT])
  5. DEXTROMETHORPHAN (DEXTROMETHORPHAN) [Suspect]
     Active Substance: DEXTROMETHORPHAN
     Indication: PRODUCT USED FOR UNKNOWN INDICATION
     Dosage: ([NOT THE PRESCRIBED AMOUNT])
  6. BIPERIDEN [Suspect]
     Active Substance: BIPERIDEN
     Indication: PRODUCT USED FOR UNKNOWN INDICATION
     Dosage: ([NOT THE PRESCRIBED AMOUNT])
  7. AMITRIPTYLINE (AMITRIPTYLINE) [Suspect]
     Active Substance: AMITRIPTYLINE
     Indication: PRODUCT USED FOR UNKNOWN INDICATION
     Dosage: ([NOT THE PRESCRIBED AMOUNT])
  8. EPHEDRINE [Suspect]
     Active Substance: EPHEDRINE
     Indication: PRODUCT USED FOR UNKNOWN INDICATION
     Dosage: ([NOT THE PRESCRIBED AMOUNT])
  9. MORPHINE (MORPHINE) [Suspect]
     Active Substance: MORPHINE
     Indication: PRODUCT USED FOR UNKNOWN INDICATION
     Dosage: ([NOT THE PRESCRIBED AMOUNT])
  10. ETHANOL (ETHANOL) [Suspect]
     Active Substance: ALCOHOL
     Indication: PRODUCT USED FOR UNKNOWN INDICATION
     Dosage: ([NOT THE PRESCRIBED AMOUNT])
  11. CODEINE [Suspect]
     Active Substance: CODEINE
     Indication: PRODUCT USED FOR UNKNOWN INDICATION
     Dosage: ([NOT THE PRESCRIBED AMOUNT])

REACTIONS (3)
  - Overdose [None]
  - Victim of homicide [None]
  - Toxicity to various agents [None]
